FAERS Safety Report 25750746 (Version 1)
Quarter: 2025Q3

REPORT INFORMATION
  Report Type: Spontaneous
  Country: GB (occurrence: GB)
  Receive Date: 20250902
  Receipt Date: 20250902
  Transmission Date: 20251021
  Serious: Yes (Other)
  Sender: MYLAN
  Company Number: None

PATIENT
  Age: 68 Year
  Sex: Male
  Weight: 70 kg

DRUGS (3)
  1. ATORVASTATIN [Suspect]
     Active Substance: ATORVASTATIN
     Indication: Product used for unknown indication
     Dosage: 20 MILLIGRAM, QD (20MG DAILY DOSAGE FOR 6 WEEKS)
  2. ATORVASTATIN [Suspect]
     Active Substance: ATORVASTATIN
  3. ATENOLOL [Concomitant]
     Active Substance: ATENOLOL
     Indication: Migraine prophylaxis

REACTIONS (2)
  - Joint swelling [Recovering/Resolving]
  - Medication error [Unknown]
